FAERS Safety Report 8228272-6 (Version None)
Quarter: 2012Q1

REPORT INFORMATION
  Report Type: 
  Country: None (occurrence: None)
  Receive Date: 20120322
  Receipt Date: 20111020
  Transmission Date: 20120608
  Serious: No
  Sender: FDA-Public Use
  Company Number: US-BRISTOL-MYERS SQUIBB COMPANY-16182016

PATIENT
  Age: 78 Year
  Sex: Male

DRUGS (1)
  1. ERBITUX [Suspect]
     Indication: HEAD AND NECK CANCER
     Dosage: 10C00124C; 10C00002A.   NUMBER OF INFUSIONS 4
     Route: 042
     Dates: start: 20111020

REACTIONS (1)
  - DRUG ADMINISTRATION ERROR [None]
